FAERS Safety Report 4678240-6 (Version None)
Quarter: 2005Q2

REPORT INFORMATION
  Report Type: 
  Country: None (occurrence: None)
  Receive Date: 20050527
  Receipt Date: 20050516
  Transmission Date: 20051028
  Serious: Yes (Hospitalization, Disabling)
  Sender: FDA-Public Use
  Company Number: 2005-01088

PATIENT
  Age: 48 Year
  Sex: Male
  Weight: 56 kg

DRUGS (1)
  1. VELCADE [Suspect]
     Dosage: INTRAVENOUS
     Route: 042

REACTIONS (4)
  - NEUROPATHIC PAIN [None]
  - PERIPHERAL SENSORY NEUROPATHY [None]
  - SENSORY LOSS [None]
  - TRANSAMINASES INCREASED [None]
